FAERS Safety Report 25071089 (Version 2)
Quarter: 2025Q1

REPORT INFORMATION
  Report Type: Spontaneous
  Country: IT (occurrence: IT)
  Receive Date: 20250312
  Receipt Date: 20250324
  Transmission Date: 20250409
  Serious: Yes (Hospitalization, Other)
  Sender: TEVA
  Company Number: IT-TEVA-VS-3307080

PATIENT
  Age: 5 Year
  Sex: Male

DRUGS (3)
  1. BUDESONIDE [Suspect]
     Active Substance: BUDESONIDE
     Indication: Protein-losing gastroenteropathy
     Route: 065
  2. CALCIUM [Suspect]
     Active Substance: CALCIUM
     Indication: Calcium deficiency
     Route: 065
  3. VITAMIN D NOS [Concomitant]
     Active Substance: CHOLECALCIFEROL\ERGOCALCIFEROL
     Indication: Vitamin D deficiency
     Route: 065

REACTIONS (4)
  - Growth failure [Unknown]
  - Cushingoid [Unknown]
  - Adrenal suppression [Unknown]
  - Drug ineffective [Unknown]
